FAERS Safety Report 8807094 (Version 1)
Quarter: 2012Q4

REPORT INFORMATION
  Report Type: 
  Country: GB (occurrence: GB)
  Receive Date: 20120925
  Receipt Date: 20120925
  Transmission Date: 20130627
  Serious: Yes (Hospitalization)
  Sender: FDA-Public Use
  Company Number: GB-TEVA-359175ISR

PATIENT
  Age: 24 Year
  Sex: Female
  Weight: 97 kg

DRUGS (18)
  1. TRIMETHOPRIM [Suspect]
     Dates: start: 20120828
  2. TOPIRAMATE [Concomitant]
     Dates: start: 20120508, end: 20120811
  3. SERTRALINE [Concomitant]
     Dates: start: 20120514, end: 20120809
  4. DOMPERIDONE [Concomitant]
     Dates: start: 20120521, end: 20120618
  5. DIAZEPAM [Concomitant]
     Dates: start: 20120521, end: 20120719
  6. PROPRANOLOL [Concomitant]
     Dates: start: 20120524, end: 20120621
  7. PROPRANOLOL [Concomitant]
     Dates: start: 20120712, end: 20120809
  8. ZOPICLONE [Concomitant]
     Dates: start: 20120611, end: 20120625
  9. ZOPICLONE [Concomitant]
     Dates: start: 20120712, end: 20120726
  10. REVAXIS [Concomitant]
     Dates: start: 20120615, end: 20120616
  11. NORETHISTERONE [Concomitant]
     Dates: start: 20120618, end: 20120628
  12. CETIRIZINE [Concomitant]
     Dates: start: 20120703, end: 20120731
  13. CO-CODAMOL [Concomitant]
     Dates: start: 20120713, end: 20120717
  14. NYSTATIN [Concomitant]
     Dates: start: 20120718, end: 20120725
  15. CLOTRIMAZOLE [Concomitant]
     Dates: start: 20120720, end: 20120721
  16. OMEPRAZOLE [Concomitant]
     Dates: start: 20120813
  17. BECLOMETASONE [Concomitant]
     Dates: start: 20120813
  18. ACETAZOLAMIDE [Concomitant]
     Dates: start: 20120813

REACTIONS (1)
  - Brain oedema [Recovering/Resolving]
